FAERS Safety Report 9308529 (Version 2)
Quarter: 2016Q1

REPORT INFORMATION
  Report Type: Report from Study
  Country: DE (occurrence: TR)
  Receive Date: 20130524
  Receipt Date: 20160303
  Transmission Date: 20160526
  Serious: Yes (Death)
  Sender: FDA-Public Use
  Company Number: DE-ACTELION-A-US2013-83701

PATIENT
  Age: 5 Month
  Sex: Female

DRUGS (1)
  1. VENTAVIS [Suspect]
     Active Substance: ILOPROST
     Indication: PULMONARY ARTERIAL HYPERTENSION
     Dosage: UNK, 6X1
     Route: 055
     Dates: start: 20130417, end: 20130505

REACTIONS (2)
  - Cardiac failure [Fatal]
  - Off label use [Unknown]
